FAERS Safety Report 5065967-X (Version None)
Quarter: 2006Q3

REPORT INFORMATION
  Report Type: 
  Country: None (occurrence: None)
  Receive Date: 20060731
  Receipt Date: 20060720
  Transmission Date: 20061208
  Serious: Yes (Death)
  Sender: FDA-Public Use
  Company Number: MZ-BOEHRINGER INGELHEIM PHARMACEUTICALS, INC.-2006-DE-03838GD

PATIENT
  Sex: Female

DRUGS (9)
  1. NEVIRAPINE [Suspect]
     Indication: HIV INFECTION
  2. NEVIRAPINE [Suspect]
     Indication: HUMAN IMMUNODEFICIENCY VIRUS TRANSMISSION
  3. NEVIRAPINE [Suspect]
     Indication: PROPHYLAXIS
  4. LAMIVUDINE [Suspect]
     Indication: HIV INFECTION
  5. LAMIVUDINE [Suspect]
     Indication: HUMAN IMMUNODEFICIENCY VIRUS TRANSMISSION
  6. LAMIVUDINE [Suspect]
     Indication: PROPHYLAXIS
  7. ANTIRETROVIRAL DRUG [Suspect]
     Indication: HIV INFECTION
  8. ANTIRETROVIRAL DRUG [Suspect]
     Indication: HUMAN IMMUNODEFICIENCY VIRUS TRANSMISSION
  9. ANTIRETROVIRAL DRUG [Suspect]
     Indication: PROPHYLAXIS

REACTIONS (2)
  - DRUG EXPOSURE DURING PREGNANCY [None]
  - HEPATIC ENZYME INCREASED [None]
